FAERS Safety Report 8605598-5 (Version None)
Quarter: 2012Q3

REPORT INFORMATION
  Report Type: 
  Country: None (occurrence: None)
  Receive Date: 20120820
  Receipt Date: 20120809
  Transmission Date: 20120928
  Serious: Yes (Other)
  Sender: FDA-Public Use
  Company Number: US-ASTRAZENECA-2012SE56782

PATIENT
  Age: 78 Year
  Sex: Male

DRUGS (3)
  1. AMBIEN [Concomitant]
  2. SEROQUEL [Suspect]
     Indication: SLEEP DISORDER
     Route: 048
  3. KLONOPIN [Concomitant]

REACTIONS (7)
  - MALAISE [None]
  - CONSTIPATION [None]
  - GASTROINTESTINAL DISORDER [None]
  - REGURGITATION [None]
  - OFF LABEL USE [None]
  - BENIGN NEOPLASM [None]
  - GINGIVAL DISORDER [None]
